FAERS Safety Report 4384808-7 (Version None)
Quarter: 2004Q2

REPORT INFORMATION
  Report Type: 
  Country: None (occurrence: None)
  Receive Date: 20040624
  Receipt Date: 20040617
  Transmission Date: 20050107
  Serious: Yes (Hospitalization)
  Sender: FDA-Public Use
  Company Number: SIE-FLU-002

PATIENT
  Age: 55 Year
  Sex: Female

DRUGS (6)
  1. KADIAN [Suspect]
     Indication: PAIN
     Dosage: 30 MG, AS NEEDED, ORAL
     Route: 048
  2. ALPRAZOLAM [Suspect]
     Dosage: 0.5 MG, AS NEEDED
  3. TRAZODONE HCL [Suspect]
     Dosage: 100 MG, NIGHTLY
  4. FENTANYL [Suspect]
     Indication: PAIN
     Dosage: 125 MCG/HR, EVERY THREE DAYS, TRANSDERMAL
     Route: 062
  5. FLUOXETINE [Suspect]
     Dosage: 80 MG, DAILY
  6. GABAPENTIN [Suspect]
     Dosage: 300 MG, THREE TIMES DAILY

REACTIONS (25)
  - ABDOMINAL ABSCESS [None]
  - ABDOMINAL PAIN [None]
  - ASTERIXIS [None]
  - BLOOD ALBUMIN DECREASED [None]
  - BLOOD POTASSIUM DECREASED [None]
  - COGNITIVE DISORDER [None]
  - CONFUSIONAL STATE [None]
  - CONSCIOUSNESS FLUCTUATING [None]
  - CONSTIPATION [None]
  - DEHYDRATION [None]
  - DELIRIUM [None]
  - DELUSION [None]
  - DISORIENTATION [None]
  - DISTURBANCE IN ATTENTION [None]
  - INFECTION [None]
  - LACK OF SPONTANEOUS SPEECH [None]
  - MENTAL IMPAIRMENT [None]
  - METABOLIC DISORDER [None]
  - MYOCLONUS [None]
  - NAUSEA [None]
  - PERSEVERATION [None]
  - PYREXIA [None]
  - SEDATION [None]
  - SMALL INTESTINAL OBSTRUCTION [None]
  - THINKING ABNORMAL [None]
